FAERS Safety Report 18281724 (Version 1)
Quarter: 2020Q3

REPORT INFORMATION
  Report Type: Spontaneous
  Country: US (occurrence: US)
  Receive Date: 20200916
  Receipt Date: 20200916
  Transmission Date: 20201103
  Serious: Yes (Other)
  Sender: FDA-Public Use
  Company Number: None

PATIENT
  Age: 35 Year
  Sex: Male
  Weight: 144.7 kg

DRUGS (2)
  1. REMDESIVIR 100MG (2 VIALS) [Suspect]
     Active Substance: REMDESIVIR
     Route: 042
     Dates: start: 20200911, end: 20200912
  2. REMDESIVIR 100MG (1 VIAL) [Suspect]
     Active Substance: REMDESIVIR
     Route: 042

REACTIONS (1)
  - Hepatic enzyme increased [None]

NARRATIVE: CASE EVENT DATE: 20200913
